FAERS Safety Report 9403475 (Version 1)
Quarter: 2013Q3

REPORT INFORMATION
  Report Type: Report from Study
  Country: FR (occurrence: FR)
  Receive Date: 20130716
  Receipt Date: 20130716
  Transmission Date: 20140515
  Serious: Yes (Hospitalization)
  Sender: FDA-Public Use
  Company Number: PHHY2012FR128799

PATIENT
  Sex: 0

DRUGS (1)
  1. ALISKIREN [Suspect]
     Dosage: UNK

REACTIONS (1)
  - Cardiac failure [Unknown]
